FAERS Safety Report 15546211 (Version 1)
Quarter: 2018Q4

REPORT INFORMATION
  Report Type: Spontaneous
  Country: US (occurrence: US)
  Receive Date: 20181024
  Receipt Date: 20181024
  Transmission Date: 20190205
  Serious: Yes (Other)
  Sender: FDA-Public Use
  Company Number: US-TEVA-2018-US-966608

PATIENT
  Age: 58 Year
  Sex: Male

DRUGS (11)
  1. METHYLPREDNISOLONE. [Concomitant]
     Active Substance: METHYLPREDNISOLONE
     Indication: LINEAR IGA DISEASE
     Route: 042
  2. NIACINAMIDE [Suspect]
     Active Substance: NIACINAMIDE
     Indication: LINEAR IGA DISEASE
     Route: 065
  3. HYDROXYZINE [Suspect]
     Active Substance: HYDROXYZINE HYDROCHLORIDE
     Indication: LINEAR IGA DISEASE
     Route: 065
  4. TRIAMCINOLONE [Suspect]
     Active Substance: TRIAMCINOLONE
     Indication: LINEAR IGA DISEASE
     Route: 065
  5. PREDNISONE. [Concomitant]
     Active Substance: PREDNISONE
     Indication: LINEAR IGA DISEASE
     Route: 065
  6. DAPSONE. [Suspect]
     Active Substance: DAPSONE
     Dosage: 150 MILLIGRAM DAILY;
     Route: 065
  7. MESALAMINE. [Suspect]
     Active Substance: MESALAMINE
     Indication: PROCTITIS ULCERATIVE
     Route: 065
  8. DAPSONE. [Suspect]
     Active Substance: DAPSONE
     Indication: LINEAR IGA DISEASE
     Dosage: INITIAL DOSAGE NOT STATED. LATER, THE DOSAGE WAS TITRATED TO 150MG PER DAY
     Route: 065
  9. METHOTREXATE. [Concomitant]
     Active Substance: METHOTREXATE
     Indication: LINEAR IGA DISEASE
     Route: 065
  10. CLOBETASOL [Suspect]
     Active Substance: CLOBETASOL
     Indication: LINEAR IGA DISEASE
     Route: 061
  11. DOXYCYCLINE. [Suspect]
     Active Substance: DOXYCYCLINE
     Indication: LINEAR IGA DISEASE
     Route: 065

REACTIONS (5)
  - Methaemoglobinaemia [Recovered/Resolved]
  - Fatigue [Unknown]
  - Treatment failure [Unknown]
  - Dermatitis acneiform [Unknown]
  - Flushing [Unknown]
